FAERS Safety Report 5286832-9 (Version None)
Quarter: 2007Q2

REPORT INFORMATION
  Report Type: 
  Country: None (occurrence: None)
  Receive Date: 20070404
  Receipt Date: 20070329
  Transmission Date: 20071010
  Serious: Yes (Hospitalization)
  Sender: FDA-Public Use
  Company Number: FR-ROXANE LABORATORIES, INC-2007-BP-04370RO

PATIENT
  Age: 31 Year
  Sex: Male

DRUGS (9)
  1. AZATHIOPRINE [Suspect]
     Indication: COLITIS ULCERATIVE
     Dates: start: 20050101
  2. MERCAPTOPURINE [Suspect]
     Indication: COLITIS ULCERATIVE
     Route: 048
     Dates: end: 20050830
  3. PREDNISONE [Suspect]
     Indication: COLITIS ULCERATIVE
     Route: 048
     Dates: end: 20050601
  4. INFLIXIMAB [Suspect]
     Indication: COLITIS ULCERATIVE
     Dosage: 5 MG/KG
     Route: 042
     Dates: start: 20050712, end: 20050712
  5. INFLIXIMAB [Suspect]
     Route: 042
     Dates: start: 20050726, end: 20050726
  6. PREDNISOLONE [Suspect]
     Indication: COLITIS ULCERATIVE
     Route: 048
     Dates: start: 20020101
  7. PREDNISOLONE [Suspect]
     Route: 048
  8. METHYLPREDNISOLONE 16MG TAB [Suspect]
     Indication: COLITIS ULCERATIVE
     Route: 042
     Dates: start: 20050201
  9. CYCLOSPORINE [Suspect]
     Indication: COLITIS ULCERATIVE
     Route: 042
     Dates: start: 20050201

REACTIONS (10)
  - CHORIOMENINGITIS LYMPHOCYTIC [None]
  - DYSPNOEA [None]
  - EXTENSOR PLANTAR RESPONSE [None]
  - HEADACHE [None]
  - HEPATITIS CHOLESTATIC [None]
  - MALAISE [None]
  - MUSCULOSKELETAL STIFFNESS [None]
  - PYREXIA [None]
  - RASH [None]
  - URINARY RETENTION [None]
